FAERS Safety Report 8940030 (Version 1)
Quarter: 2012Q4

REPORT INFORMATION
  Report Type: 
  Country: CN (occurrence: CN)
  Receive Date: 20121130
  Receipt Date: 20121130
  Transmission Date: 20130627
  Serious: Yes (Other)
  Sender: FDA-Public Use
  Company Number: CN-009507513-1211CHN012364

PATIENT
  Sex: Female

DRUGS (1)
  1. ELOSON [Suspect]
     Indication: PRURITUS
     Dosage: 0.2 unk 5 times one day
     Route: 061
     Dates: start: 20100426, end: 20100430

REACTIONS (1)
  - Hypersensitivity [Recovering/Resolving]
